FAERS Safety Report 19066190 (Version 2)
Quarter: 2021Q1

REPORT INFORMATION
  Report Type: Report from Study
  Country: PK (occurrence: PK)
  Receive Date: 20210327
  Receipt Date: 20210331
  Transmission Date: 20210420
  Serious: Yes (Other)
  Sender: FDA-Public Use
  Company Number: NVSC2021PK065580

PATIENT
  Age: 10 Year
  Sex: Male

DRUGS (3)
  1. SANDIMMUN NEORAL [Suspect]
     Active Substance: CYCLOSPORINE
     Dosage: 2 DF, BID
     Route: 048
     Dates: start: 20200203, end: 202103
  2. SANDIMMUN NEORAL [Suspect]
     Active Substance: CYCLOSPORINE
     Indication: HYPERSENSITIVITY
     Dosage: 3 DF, BID
     Route: 048
     Dates: start: 20190405, end: 202002
  3. SANDIMMUN NEORAL [Suspect]
     Active Substance: CYCLOSPORINE
     Dosage: 3 DF, BID
     Route: 048
     Dates: start: 20210316

REACTIONS (2)
  - Product use in unapproved indication [Unknown]
  - Swelling [Recovering/Resolving]

NARRATIVE: CASE EVENT DATE: 20190405
